FAERS Safety Report 9150474 (Version 1)
Quarter: 2013Q1

REPORT INFORMATION
  Report Type: Spontaneous
  Country: FR (occurrence: FR)
  Receive Date: 20130308
  Receipt Date: 20130308
  Transmission Date: 20140127
  Serious: Yes (Hospitalization)
  Sender: FDA-Public Use
  Company Number: FR-BRISTOL-MYERS SQUIBB COMPANY-17432899

PATIENT
  Age: 83 Year
  Sex: Male

DRUGS (8)
  1. COUMADINE [Suspect]
  2. INEXIUM [Concomitant]
  3. GLIVEC [Concomitant]
  4. SECTRAL [Concomitant]
  5. LASILIX [Concomitant]
     Dosage: 1 DF:40 UNITS NOS
  6. CORDARONE [Concomitant]
  7. PRAVASTATIN SODIUM [Concomitant]
  8. LYSANXIA [Concomitant]

REACTIONS (3)
  - Rectal haemorrhage [Recovered/Resolved]
  - Anaemia [Recovered/Resolved]
  - Angiodysplasia [Unknown]
